FAERS Safety Report 25250997 (Version 1)
Quarter: 2025Q2

REPORT INFORMATION
  Report Type: Spontaneous
  Country: US (occurrence: None)
  Receive Date: 20250428
  Receipt Date: 20250428
  Transmission Date: 20250716
  Serious: Yes (Other)
  Sender: FDA-CTU
  Company Number: None

PATIENT
  Age: 68 Year
  Sex: Female

DRUGS (1)
  1. DALFAMPRIDINE [Suspect]
     Active Substance: DALFAMPRIDINE
     Indication: Multiple sclerosis
     Dosage: 10MG BID ?

REACTIONS (6)
  - Adverse drug reaction [None]
  - Mouth swelling [None]
  - Swelling [None]
  - Pharyngeal swelling [None]
  - Rash [None]
  - Dizziness [None]
